FAERS Safety Report 25141253 (Version 2)
Quarter: 2025Q4

REPORT INFORMATION
  Report Type: Spontaneous
  Country: EU (occurrence: EU)
  Receive Date: 20250331
  Receipt Date: 20251126
  Transmission Date: 20260117
  Serious: Yes (Other)
  Sender: ASTELLAS
  Company Number: EU-ASTELLAS-2025-AER-018069

PATIENT
  Age: 73 Year
  Sex: Male

DRUGS (4)
  1. PADCEV [Suspect]
     Active Substance: ENFORTUMAB VEDOTIN-EJFV
     Indication: Metastatic carcinoma of the bladder
     Dosage: THIRD LINE TREATMENT
     Route: 065
     Dates: start: 202401
  2. PADCEV [Suspect]
     Active Substance: ENFORTUMAB VEDOTIN-EJFV
     Dosage: DOSE REDUCED
     Route: 065
     Dates: start: 202402, end: 202406
  3. PADCEV [Suspect]
     Active Substance: ENFORTUMAB VEDOTIN-EJFV
     Route: 065
     Dates: start: 202502, end: 202511
  4. PEMBROLIZUMAB [Concomitant]
     Active Substance: PEMBROLIZUMAB
     Indication: Metastatic carcinoma of the bladder
     Dosage: SECOND LINE TREATMENT?3 CYCLES
     Route: 065
     Dates: start: 202311, end: 202401

REACTIONS (4)
  - Left ventricular failure [Recovering/Resolving]
  - Acute myocardial infarction [Recovering/Resolving]
  - Rash [Recovered/Resolved]
  - Therapy partial responder [Unknown]

NARRATIVE: CASE EVENT DATE: 20240601
